FAERS Safety Report 9940768 (Version 1)
Quarter: 2014Q1

REPORT INFORMATION
  Report Type: Spontaneous
  Country: US (occurrence: US)
  Receive Date: 20140303
  Receipt Date: 20140303
  Transmission Date: 20141002
  Serious: Yes (Life-Threatening, Hospitalization, Other)
  Sender: FDA-Public Use
  Company Number: US-ACTAVIS-2014-03193

PATIENT
  Age: 54 Year
  Sex: Female

DRUGS (7)
  1. METFORMIN HYDROCHLORIDE (WATSON LABORATORIES) [Suspect]
     Indication: DIABETES MELLITUS
     Dosage: UNK
     Route: 065
  2. ENALAPRIL (WATSON LABORATORIES) [Suspect]
     Indication: PRODUCT USED FOR UNKNOWN INDICATION
     Dosage: UNK
     Route: 065
  3. ACETYLSALICYLIC ACID [Suspect]
     Indication: PAIN
     Dosage: UNK
     Route: 065
  4. IBUPROFEN (AMALLC) [Suspect]
     Indication: PRODUCT USED FOR UNKNOWN INDICATION
     Dosage: UNK
     Route: 065
  5. NIMESULIDE (UNKNOWN) [Suspect]
     Indication: PRODUCT USED FOR UNKNOWN INDICATION
     Dosage: UNK
     Route: 065
  6. IMIPRAMINE [Concomitant]
     Indication: PRODUCT USED FOR UNKNOWN INDICATION
     Dosage: UNK
     Route: 065
  7. GLIMEPIRIDE [Concomitant]
     Indication: PRODUCT USED FOR UNKNOWN INDICATION
     Dosage: UNK
     Route: 065

REACTIONS (5)
  - Lactic acidosis [Recovered/Resolved]
  - Renal failure acute [Recovered/Resolved]
  - Cardiac failure [Recovered/Resolved]
  - Respiratory disorder [Recovered/Resolved]
  - Pancreatitis acute [Recovered/Resolved]
